FAERS Safety Report 9517464 (Version 1)
Quarter: 2013Q3

REPORT INFORMATION
  Report Type: Spontaneous
  Country: US (occurrence: US)
  Receive Date: 20130911
  Receipt Date: 20130911
  Transmission Date: 20140515
  Serious: No
  Sender: FDA-Public Use
  Company Number: US-009507513-1309USA002747

PATIENT
  Age: 63 Year
  Sex: Female

DRUGS (2)
  1. AZASITE [Suspect]
     Indication: HORDEOLUM
     Dosage: 4 GTT, A DAY
     Route: 047
     Dates: start: 201308
  2. AZASITE [Suspect]
     Dosage: 2 GTT, UNK
     Route: 047
     Dates: start: 20130827, end: 20130829

REACTIONS (6)
  - Ocular hyperaemia [Not Recovered/Not Resolved]
  - Pain [Not Recovered/Not Resolved]
  - Drug ineffective [Unknown]
  - Drug prescribing error [Unknown]
  - Incorrect drug administration duration [Unknown]
  - Overdose [Unknown]
